FAERS Safety Report 13263351 (Version 1)
Quarter: 2017Q1

REPORT INFORMATION
  Report Type: Spontaneous
  Country: US (occurrence: US)
  Receive Date: 20170222
  Receipt Date: 20170222
  Transmission Date: 20170428
  Serious: Yes (Hospitalization)
  Sender: FDA-Public Use
  Company Number: None

PATIENT
  Age: 64 Year
  Sex: Male

DRUGS (3)
  1. ARANESP [Suspect]
     Active Substance: DARBEPOETIN ALFA
     Indication: CHRONIC LYMPHOCYTIC LEUKAEMIA
     Dosage: 300MCG Q 3 WEEJS SQ
     Route: 058
     Dates: start: 20170203
  2. IRON [Concomitant]
     Active Substance: IRON
  3. MORPHINE [Concomitant]
     Active Substance: MORPHINE

REACTIONS (1)
  - Rash [None]

NARRATIVE: CASE EVENT DATE: 20170218
